FAERS Safety Report 12528277 (Version 1)
Quarter: 2016Q3

REPORT INFORMATION
  Report Type: Other
  Country: US (occurrence: US)
  Receive Date: 20160705
  Receipt Date: 20160705
  Transmission Date: 20161109
  Serious: Yes (Other)
  Sender: FDA-Public Use
  Company Number: US-SHIRE-US201607676

PATIENT
  Age: 20 Year

DRUGS (2)
  1. CARBATROL [Suspect]
     Active Substance: CARBAMAZEPINE
     Indication: PRODUCT USED FOR UNKNOWN INDICATION
     Dosage: 3 DF, OTHER (A DAY)
     Route: 048
     Dates: start: 20141021, end: 201606
  2. CARBATROL [Suspect]
     Active Substance: CARBAMAZEPINE
     Dosage: 4 DF, OTHER (A DAY)
     Route: 048
     Dates: start: 20160621

REACTIONS (2)
  - Drug level decreased [Unknown]
  - Seizure [Recovered/Resolved]

NARRATIVE: CASE EVENT DATE: 20160621
